FAERS Safety Report 16235964 (Version 1)
Quarter: 2019Q2

REPORT INFORMATION
  Report Type: Spontaneous
  Country: GB (occurrence: GB)
  Receive Date: 20190425
  Receipt Date: 20190425
  Transmission Date: 20190711
  Serious: Yes (Other)
  Sender: FDA-Public Use
  Company Number: GB-AUROBINDO-AUR-APL-2019-021987

PATIENT

DRUGS (4)
  1. LORAZEPAM. [Suspect]
     Active Substance: LORAZEPAM
     Indication: PRODUCT USED FOR UNKNOWN INDICATION
     Dosage: 1 UNK, FOUR TIMES/DAY
     Route: 065
  2. CLOPIXOL [Suspect]
     Active Substance: ZUCLOPENTHIXOL
     Indication: PRODUCT USED FOR UNKNOWN INDICATION
     Dosage: 500 MILLIGRAM
     Route: 065
  3. SERTRALINE [Suspect]
     Active Substance: SERTRALINE HYDROCHLORIDE
     Indication: PRODUCT USED FOR UNKNOWN INDICATION
     Dosage: UNK
     Route: 065
  4. CLOPIXOL [Suspect]
     Active Substance: ZUCLOPENTHIXOL
     Dosage: 200 MILLIGRAM,2 WEEK
     Route: 065

REACTIONS (13)
  - Feeling abnormal [Unknown]
  - Skull fracture [Unknown]
  - Seizure [Unknown]
  - Gait disturbance [Unknown]
  - Drug intolerance [Unknown]
  - Malaise [Unknown]
  - Lower limb fracture [Unknown]
  - Movement disorder [Unknown]
  - Eye movement disorder [Unknown]
  - Condition aggravated [Unknown]
  - Hip fracture [Unknown]
  - Central nervous system lesion [Unknown]
  - Muscular weakness [Unknown]
